FAERS Safety Report 22781563 (Version 2)
Quarter: 2023Q4

REPORT INFORMATION
  Report Type: Report from Study
  Country: US (occurrence: None)
  Receive Date: 20230803
  Receipt Date: 20231006
  Transmission Date: 20240110
  Serious: Yes (Death, Other)
  Sender: FDA-Public Use
  Company Number: US-ROCHE-3385470

PATIENT
  Age: 79 Year
  Sex: Male
  Weight: 76.7 kg

DRUGS (1)
  1. TENECTEPLASE [Suspect]
     Active Substance: TENECTEPLASE
     Indication: Cerebrovascular accident
     Route: 013
     Dates: start: 20230705, end: 20230705

REACTIONS (3)
  - Haemorrhagic transformation stroke [Unknown]
  - Stroke in evolution [Fatal]
  - Hypotension [Unknown]

NARRATIVE: CASE EVENT DATE: 20230706
